FAERS Safety Report 26099609 (Version 1)
Quarter: 2025Q4

REPORT INFORMATION
  Report Type: Report from Study
  Country: US (occurrence: US)
  Receive Date: 20251128
  Receipt Date: 20251128
  Transmission Date: 20260117
  Serious: Yes (Hospitalization)
  Sender: ABBVIE
  Company Number: US-ABBVIE-6564959

PATIENT
  Age: 80 Year
  Sex: Female

DRUGS (1)
  1. RINVOQ [Suspect]
     Active Substance: UPADACITINIB
     Indication: Rheumatoid arthritis
     Dosage: STRENGTH 15 MG
     Route: 048
     Dates: start: 202301, end: 202511

REACTIONS (8)
  - Clostridium difficile infection [Unknown]
  - Infection [Unknown]
  - Pneumonia [Unknown]
  - Blood sodium decreased [Unknown]
  - Pneumonia [Unknown]
  - Clostridium difficile infection [Unknown]
  - Blood potassium decreased [Unknown]
  - Adverse drug reaction [Unknown]

NARRATIVE: CASE EVENT DATE: 20250101
